FAERS Safety Report 5632872-7 (Version None)
Quarter: 2008Q1

REPORT INFORMATION
  Report Type: 
  Country: None (occurrence: None)
  Receive Date: 20080221
  Receipt Date: 20080218
  Transmission Date: 20080703
  Serious: Yes (Hospitalization)
  Sender: FDA-Public Use
  Company Number: FR-BRISTOL-MYERS SQUIBB COMPANY-14080014

PATIENT
  Age: 61 Year
  Sex: Female

DRUGS (8)
  1. APROVEL TABS 150 MG [Suspect]
     Dates: end: 20080109
  2. VALACYCLOVIR [Suspect]
     Dates: start: 20071227, end: 20080109
  3. ESIDRIX [Suspect]
     Dates: start: 20071227, end: 20080109
  4. FOSAMAX [Concomitant]
     Dates: start: 20071228, end: 20080106
  5. CORTANCYL [Concomitant]
     Dates: start: 20071227
  6. IMUREL [Concomitant]
  7. BACTRIM [Concomitant]
  8. CALCIDOSE [Concomitant]

REACTIONS (1)
  - RENAL FAILURE [None]
